FAERS Safety Report 5141601-5 (Version None)
Quarter: 2006Q4

REPORT INFORMATION
  Report Type: 
  Country: None (occurrence: None)
  Receive Date: 20061026
  Receipt Date: 20061016
  Transmission Date: 20070319
  Serious: Yes (Other)
  Sender: FDA-Public Use
  Company Number: 2006105712

PATIENT
  Sex: Male
  Weight: 78.0187 kg

DRUGS (6)
  1. NEURONTIN [Suspect]
     Indication: NEURALGIA
     Dosage: 2400 MG (600 MG, 4 IN 1 D)
  2. ALCOHOL (ETHANOL) [Suspect]
     Indication: DRUG USE FOR UNKNOWN INDICATION
  3. GABAPENTIN [Suspect]
     Indication: NEURALGIA
     Dosage: 2400 MG (600 MG, 4 IN 1 D)
  4. LYRICA [Suspect]
     Indication: NEURALGIA
     Dosage: 150 MG (75 MG, 2 IN 1 D)
     Dates: start: 20060915, end: 20060901
  5. TEGRETOL [Concomitant]
  6. KLONOPIN [Concomitant]

REACTIONS (8)
  - ALCOHOL USE [None]
  - DEPRESSION [None]
  - DISEASE RECURRENCE [None]
  - DRUG INEFFECTIVE [None]
  - FEELING ABNORMAL [None]
  - MOTOR DYSFUNCTION [None]
  - PAIN [None]
  - TINNITUS [None]
